FAERS Safety Report 8572605-8 (Version None)
Quarter: 2012Q3

REPORT INFORMATION
  Report Type: 
  Country: None (occurrence: None)
  Receive Date: 20120806
  Receipt Date: 20120727
  Transmission Date: 20120928
  Serious: Yes (Other)
  Sender: FDA-Public Use
  Company Number: CA-ROCHE-1095143

PATIENT
  Sex: Male
  Weight: 68.1 kg

DRUGS (1)
  1. ACTEMRA [Suspect]
     Indication: RHEUMATOID ARTHRITIS
     Dosage: FREQUENCY: Q4 WEEKS
     Route: 042
     Dates: start: 20120531

REACTIONS (1)
  - BLISTER [None]
